FAERS Safety Report 4588879-4 (Version None)
Quarter: 2005Q1

REPORT INFORMATION
  Report Type: 
  Country: None (occurrence: None)
  Receive Date: 20050216
  Receipt Date: 20050129
  Transmission Date: 20050727
  Serious: Yes (Hospitalization)
  Sender: FDA-Public Use
  Company Number: ATO-05-0031

PATIENT
  Age: 77 Year
  Sex: Female
  Weight: 69.8539 kg

DRUGS (8)
  1. TRISENOX [Suspect]
     Indication: MULTIPLE MYELOMA
     Dosage: 17 MG (17 MG, 2X/WK) IVI
     Route: 042
     Dates: start: 20050117, end: 20050128
  2. MELPHALAN [Suspect]
     Indication: MULTIPLE MYELOMA
     Dosage: 1 MG/KG (1 MG/KG, DAYS 1-4), ORAL
     Route: 048
     Dates: start: 20050117, end: 20050120
  3. VITAMIN C [Concomitant]
  4. LASIX [Concomitant]
  5. ZOMETA [Concomitant]
  6. AREDIA [Concomitant]
  7. ALDACTONE [Concomitant]
  8. VITAMIN C [Concomitant]

REACTIONS (6)
  - ASTHENIA [None]
  - FALL [None]
  - GAIT DISTURBANCE [None]
  - LETHARGY [None]
  - PERSONALITY CHANGE [None]
  - SUBDURAL HAEMATOMA [None]
